FAERS Safety Report 10593861 (Version 1)
Quarter: 2014Q4

REPORT INFORMATION
  Report Type: Spontaneous
  Country: US (occurrence: US)
  Receive Date: 20141119
  Receipt Date: 20141119
  Transmission Date: 20150529
  Serious: Yes (Other)
  Sender: FDA-Public Use
  Company Number: US-CELGENE-USA-2014112607

PATIENT
  Age: 53 Year
  Sex: Female

DRUGS (1)
  1. OTEZLA [Suspect]
     Active Substance: APREMILAST
     Indication: PSORIATIC ARTHROPATHY
     Dosage: TITRATION, 10MG, 20MG, 30MG
     Route: 048
     Dates: start: 20140529, end: 20140601

REACTIONS (3)
  - Dehydration [Unknown]
  - Urticaria [Unknown]
  - Weight decreased [Unknown]

NARRATIVE: CASE EVENT DATE: 20140529
